FAERS Safety Report 5887387-8 (Version None)
Quarter: 2008Q3

REPORT INFORMATION
  Report Type: 
  Country: None (occurrence: None)
  Receive Date: 20080918
  Receipt Date: 20080915
  Transmission Date: 20090109
  Serious: Yes (Death, Hospitalization, Other)
  Sender: FDA-Public Use
  Company Number: IT-CELGENEUS-083-21880-08070239

PATIENT
  Sex: Male

DRUGS (4)
  1. REVLIMID [Suspect]
     Indication: WALDENSTROM'S MACROGLOBULINAEMIA
     Route: 048
     Dates: start: 20080616, end: 20080630
  2. REVLIMID [Suspect]
     Indication: ADULT T-CELL LYMPHOMA/LEUKAEMIA
  3. SELEDIE [Concomitant]
     Indication: ANTICOAGULANT THERAPY
     Dosage: 1 VIAL
     Route: 051
  4. SELEDIE [Concomitant]
     Route: 048

REACTIONS (5)
  - CEREBROVASCULAR ACCIDENT [None]
  - DYSPNOEA [None]
  - HYPERPYREXIA [None]
  - PNEUMONIA [None]
  - RESPIRATORY FAILURE [None]
